FAERS Safety Report 9918848 (Version 2)
Quarter: 2014Q2

REPORT INFORMATION
  Report Type: Spontaneous
  Country: US (occurrence: US)
  Receive Date: 20140224
  Receipt Date: 20140428
  Transmission Date: 20141212
  Serious: Yes (Hospitalization)
  Sender: FDA-Public Use
  Company Number: US-BAYER-2014-027598

PATIENT
  Age: 23 Year
  Sex: Female
  Weight: 46.71 kg

DRUGS (1)
  1. MIRENA [Suspect]
     Indication: CONTRACEPTION
     Dosage: 20 MCG/24HR, CONT
     Route: 015
     Dates: start: 20080922, end: 20120131

REACTIONS (9)
  - Device dislocation [None]
  - Injury [None]
  - Medical device discomfort [None]
  - Medical device pain [None]
  - Device dislocation [None]
  - Abdominal pain upper [None]
  - Abdominal discomfort [None]
  - Abdominal pain lower [None]
  - Device issue [None]
